FAERS Safety Report 6528683-0 (Version None)
Quarter: 2009Q4

REPORT INFORMATION
  Report Type: 
  Country: None (occurrence: None)
  Receive Date: 20091222
  Receipt Date: 20091109
  Transmission Date: 20100525
  Serious: No
  Sender: FDA-Public Use
  Company Number: ALL1-2009-03580

PATIENT
  Sex: Male

DRUGS (3)
  1. VYVANSE [Suspect]
     Indication: ATTENTION DEFICIT/HYPERACTIVITY DISORDER
     Dosage: 30 MG, 1X/DAY: QD, ORAL; 50 MG, 1X/DAY: QD, ORAL; 30 MG, 1X/DAY: QD, ORAL
     Route: 048
     Dates: end: 20090901
  2. VYVANSE [Suspect]
     Indication: ATTENTION DEFICIT/HYPERACTIVITY DISORDER
     Dosage: 30 MG, 1X/DAY: QD, ORAL; 50 MG, 1X/DAY: QD, ORAL; 30 MG, 1X/DAY: QD, ORAL
     Route: 048
     Dates: start: 20090901, end: 20091101
  3. VYVANSE [Suspect]
     Indication: ATTENTION DEFICIT/HYPERACTIVITY DISORDER
     Dosage: 30 MG, 1X/DAY: QD, ORAL; 50 MG, 1X/DAY: QD, ORAL; 30 MG, 1X/DAY: QD, ORAL
     Route: 048
     Dates: start: 20091101

REACTIONS (3)
  - DRUG INEFFECTIVE [None]
  - MIOSIS [None]
  - MYDRIASIS [None]
